FAERS Safety Report 9235946 (Version 1)
Quarter: 2013Q2

REPORT INFORMATION
  Report Type: Spontaneous
  Country: US (occurrence: None)
  Receive Date: 20130416
  Receipt Date: 20130416
  Transmission Date: 20140414
  Serious: No
  Sender: FDA-Public Use
  Company Number: None

PATIENT
  Sex: Male

DRUGS (3)
  1. STIVARGA 40MG BAYER [Suspect]
     Indication: COLORECTAL CANCER
     Dosage: 4 TABS.
     Route: 048
  2. METHOCARBAMOL [Concomitant]
  3. NORCO [Concomitant]

REACTIONS (2)
  - Disease progression [None]
  - Drug effect decreased [None]
